FAERS Safety Report 8458636-7 (Version None)
Quarter: 2012Q2

REPORT INFORMATION
  Report Type: 
  Country: None (occurrence: None)
  Receive Date: 20120615
  Receipt Date: 20120608
  Transmission Date: 20120825
  Serious: Yes (Other)
  Sender: FDA-Public Use
  Company Number: 2012MA007255

PATIENT
  Age: 60 Year
  Sex: Female

DRUGS (4)
  1. PRAMIPEXOLE DIHYDROCHLORIDE [Suspect]
     Indication: PARKINSON'S DISEASE
     Dosage: 5 MG;QD;PO
     Route: 048
     Dates: start: 20031101
  2. ZELAPAR [Concomitant]
  3. ENTACAPONE [Concomitant]
  4. MADOPAR [Concomitant]

REACTIONS (4)
  - MARITAL PROBLEM [None]
  - IMPULSE-CONTROL DISORDER [None]
  - GAMBLING [None]
  - INCORRECT DOSE ADMINISTERED [None]
